FAERS Safety Report 20126686 (Version 1)
Quarter: 2021Q4

REPORT INFORMATION
  Report Type: Spontaneous
  Country: US (occurrence: None)
  Receive Date: 20211129
  Receipt Date: 20211129
  Transmission Date: 20220303
  Serious: Yes (Death)
  Sender: FDA-Public Use
  Company Number: None

PATIENT
  Age: 64 Year
  Sex: Male
  Weight: 108 kg

DRUGS (2)
  1. CASIRIVIMAB\IMDEVIMAB [Suspect]
     Active Substance: CASIRIVIMAB\IMDEVIMAB
     Indication: COVID-19
     Dosage: FREQUENCY : ONCE;?
     Route: 042
     Dates: start: 20211112, end: 20211112
  2. ENOXAPARIN [Suspect]
     Active Substance: ENOXAPARIN
     Indication: Deep vein thrombosis
     Dosage: FREQUENCY : TWICE A DAY;?
     Route: 058
     Dates: start: 20211112, end: 20211119

REACTIONS (7)
  - Arthralgia [None]
  - Haematoma muscle [None]
  - Pulseless electrical activity [None]
  - Anaemia [None]
  - Cardiac arrest [None]
  - Hypotension [None]
  - Hepatic enzyme increased [None]

NARRATIVE: CASE EVENT DATE: 20211119
